FAERS Safety Report 23336732 (Version 1)
Quarter: 2023Q4

REPORT INFORMATION
  Report Type: Report from Study
  Country: US (occurrence: US)
  Receive Date: 20231226
  Receipt Date: 20231226
  Transmission Date: 20240109
  Serious: Yes (Death)
  Sender: FDA-Public Use
  Company Number: US-Merck Healthcare KGaA-2023495663

PATIENT
  Sex: Male

DRUGS (2)
  1. MAVENCLAD [Suspect]
     Active Substance: CLADRIBINE
     Indication: Relapsing-remitting multiple sclerosis
     Dosage: YEAR ONE MONTH ONE THERAPY: TOOK DAY 1 ON 07-NOV-2022 AND DAY 2 ON 08-NOV-2022
     Route: 048
     Dates: start: 20221107
  2. MAVENCLAD [Suspect]
     Active Substance: CLADRIBINE
     Dosage: RESTARTED THERAPY
     Route: 048
     Dates: start: 20230120

REACTIONS (1)
  - Death [Fatal]
